FAERS Safety Report 18535691 (Version 1)
Quarter: 2020Q4

REPORT INFORMATION
  Report Type: Spontaneous
  Country: MA (occurrence: MA)
  Receive Date: 20201123
  Receipt Date: 20201123
  Transmission Date: 20210114
  Serious: Yes (Hospitalization)
  Sender: FDA-Public Use
  Company Number: MA-MYLANLABS-2020M1096385

PATIENT
  Age: 42 Year
  Sex: Male

DRUGS (3)
  1. MAGNESIUM SULFATE. [Concomitant]
     Active Substance: MAGNESIUM SULFATE
     Indication: ASTHMA
     Dosage: BOLUS
  2. SALBUTAMOL [Suspect]
     Active Substance: ALBUTEROL
     Dosage: 5 MILLIGRAM, 20 MIN; BOLUS ADMINISTRATION...
     Route: 050
  3. SALBUTAMOL [Suspect]
     Active Substance: ALBUTEROL
     Indication: ASTHMA
     Dosage: UNK

REACTIONS (5)
  - Hyperlactacidaemia [Recovered/Resolved]
  - Lactic acidosis [Recovered/Resolved]
  - Asthma [Recovering/Resolving]
  - Tachypnoea [Recovering/Resolving]
  - Respiratory failure [Recovering/Resolving]
